FAERS Safety Report 6809014-5 (Version None)
Quarter: 2010Q2

REPORT INFORMATION
  Report Type: 
  Country: None (occurrence: None)
  Receive Date: 20100630
  Receipt Date: 20100623
  Transmission Date: 20101027
  Serious: Yes (Hospitalization)
  Sender: FDA-Public Use
  Company Number: JP-SP-2010-03235

PATIENT
  Sex: Female

DRUGS (8)
  1. IMMUCYST [Suspect]
     Indication: BLADDER CANCER
     Route: 043
     Dates: start: 20100331, end: 20100526
  2. AMLODIPINE BESYLATE [Concomitant]
  3. TOSUFLOXACIN TOSILATE [Concomitant]
     Route: 048
     Dates: start: 20100428, end: 20100527
  4. CHOREI-TO-TO-SHIMOTSU-TO [Concomitant]
     Dates: start: 20100512, end: 20100602
  5. SULPIRIDE [Concomitant]
     Dates: start: 20090101
  6. LORAZEPAM [Concomitant]
     Dates: start: 20090101
  7. MECOBALAMIN [Concomitant]
     Dates: start: 20090101
  8. SERTRALINE HYDROCHLORIDE [Concomitant]
     Dates: start: 20100401, end: 20100501

REACTIONS (9)
  - ARTHRALGIA [None]
  - CONJUNCTIVITIS [None]
  - DYSURIA [None]
  - HEPATIC FUNCTION ABNORMAL [None]
  - OCULAR HYPERAEMIA [None]
  - POLYARTHRITIS [None]
  - PYREXIA [None]
  - REITER'S SYNDROME [None]
  - SWELLING [None]
